FAERS Safety Report 5713183-8 (Version None)
Quarter: 2008Q2

REPORT INFORMATION
  Report Type: 
  Country: None (occurrence: None)
  Receive Date: 20080422
  Receipt Date: 20080411
  Transmission Date: 20081010
  Serious: Yes (Hospitalization, Other)
  Sender: FDA-Public Use
  Company Number: PHHY2008KR03523

PATIENT
  Age: 45 Year
  Sex: Female
  Weight: 55 kg

DRUGS (3)
  1. GLEEVEC [Suspect]
     Indication: GASTROINTESTINAL STROMAL TUMOUR
     Dosage: 400 MG / DAY
     Route: 048
     Dates: start: 20070404, end: 20080314
  2. DAPSONE [Suspect]
     Indication: NEURODERMATITIS
     Dosage: 100 MG, UNK
     Dates: start: 20080129, end: 20080216
  3. DAPSONE [Suspect]
     Dosage: 100 MG, UNK
     Dates: start: 20080305, end: 20080305

REACTIONS (7)
  - DRUG HYPERSENSITIVITY [None]
  - HAEMOLYTIC ANAEMIA [None]
  - NEURODERMATITIS [None]
  - PYREXIA [None]
  - RASH PAPULAR [None]
  - RASH PUSTULAR [None]
  - SCAB [None]
